FAERS Safety Report 9281339 (Version 1)
Quarter: 2013Q2

REPORT INFORMATION
  Report Type: Spontaneous
  Country: JP (occurrence: JP)
  Receive Date: 20130509
  Receipt Date: 20130509
  Transmission Date: 20140414
  Serious: Yes (Other)
  Sender: FDA-Public Use
  Company Number: JP-ELI_LILLY_AND_COMPANY-JP201305002713

PATIENT
  Age: 73 Year
  Sex: Male

DRUGS (4)
  1. CYMBALTA [Suspect]
     Indication: DEPRESSION
     Dosage: 20 MG, QD
     Route: 048
     Dates: start: 20130423, end: 20130426
  2. DEPAS [Concomitant]
     Indication: DEPRESSION
     Dosage: 0.5 MG, UNK
     Route: 048
  3. PREDNISOLONE [Concomitant]
     Dosage: 5 MG, TID
     Route: 048
  4. LANIRAPID [Concomitant]
     Dosage: 0.1 MG, UNK
     Route: 048

REACTIONS (2)
  - Interstitial lung disease [Unknown]
  - Somnolence [Unknown]
